FAERS Safety Report 5682485-6 (Version None)
Quarter: 2008Q1

REPORT INFORMATION
  Report Type: 
  Country: None (occurrence: None)
  Receive Date: 20080327
  Receipt Date: 20080317
  Transmission Date: 20080703
  Serious: Yes (Hospitalization)
  Sender: FDA-Public Use
  Company Number: US-AMGEN-QUU270095

PATIENT
  Sex: Female

DRUGS (2)
  1. ENBREL [Suspect]
     Indication: RHEUMATOID ARTHRITIS
     Route: 058
     Dates: start: 20060301
  2. METHOTREXATE [Concomitant]
     Route: 048
     Dates: start: 20080305

REACTIONS (4)
  - INCREASED TENDENCY TO BRUISE [None]
  - INJECTION SITE BRUISING [None]
  - MITRAL VALVE PROLAPSE [None]
  - RHEUMATOID ARTHRITIS [None]
